FAERS Safety Report 10040530 (Version 1)
Quarter: 2014Q1

REPORT INFORMATION
  Report Type: Other
  Country: JP (occurrence: JP)
  Receive Date: 20140327
  Receipt Date: 20140327
  Transmission Date: 20141002
  Serious: Yes (Death, Hospitalization)
  Sender: FDA-Public Use
  Company Number: JP-ACTELION-A-CH2014-96621

PATIENT
  Age: 43 Year
  Sex: Male

DRUGS (5)
  1. TRACLEER [Suspect]
     Indication: PULMONARY ARTERIAL HYPERTENSION
     Dosage: UNK
     Route: 048
  2. EPOPROSTENOL [Suspect]
     Indication: PULMONARY ARTERIAL HYPERTENSION
     Dosage: 26 NG/KG, UNK
     Route: 042
  3. SILDENAFIL [Concomitant]
     Indication: PULMONARY ARTERIAL HYPERTENSION
  4. IMATINIB [Concomitant]
     Indication: PULMONARY ARTERIAL HYPERTENSION
     Dosage: 150 MG, QD
  5. IMATINIB [Concomitant]
     Dosage: 100 MG, QD

REACTIONS (5)
  - Right ventricular failure [Fatal]
  - Pulmonary oedema [Recovering/Resolving]
  - Oxygen saturation decreased [Recovering/Resolving]
  - Dyspnoea [Fatal]
  - Brain natriuretic peptide increased [Fatal]
